FAERS Safety Report 19159378 (Version 1)
Quarter: 2021Q2

REPORT INFORMATION
  Report Type: Spontaneous
  Country: US (occurrence: US)
  Receive Date: 20210420
  Receipt Date: 20210420
  Transmission Date: 20210717
  Serious: No
  Sender: FDA-Public Use
  Company Number: US-AMGEN-USASP2021054924

PATIENT
  Age: 68 Year
  Sex: Female

DRUGS (1)
  1. PROLIA [Suspect]
     Active Substance: DENOSUMAB
     Indication: OSTEOPOROSIS POSTMENOPAUSAL
     Dosage: UNK
     Route: 065

REACTIONS (9)
  - Trigger finger [Unknown]
  - Product dose omission issue [Unknown]
  - Overweight [Unknown]
  - Therapeutic product effect incomplete [Unknown]
  - Grip strength decreased [Unknown]
  - COVID-19 [Recovering/Resolving]
  - Body height decreased [Unknown]
  - Exostosis [Not Recovered/Not Resolved]
  - Rotator cuff syndrome [Unknown]

NARRATIVE: CASE EVENT DATE: 202008
